FAERS Safety Report 19384099 (Version 2)
Quarter: 2021Q2

REPORT INFORMATION
  Report Type: Spontaneous
  Country: US (occurrence: US)
  Receive Date: 20210608
  Receipt Date: 20210610
  Transmission Date: 20210717
  Serious: Yes (Other)
  Sender: FDA-Public Use
  Company Number: US-DRREDDYS-USA/USA/21/0136348

PATIENT
  Age: 20 Year
  Sex: Female

DRUGS (1)
  1. DIVALPROEX SODIUM EXTENDED RELEASE TABLETS 500 MG [Suspect]
     Active Substance: DIVALPROEX SODIUM
     Indication: PRODUCT USED FOR UNKNOWN INDICATION
     Dosage: 60 TABLETS OF 500MG

REACTIONS (3)
  - Hyperammonaemia [Recovered/Resolved]
  - Toxicity to various agents [Recovered/Resolved]
  - Intentional overdose [Recovered/Resolved]
